FAERS Safety Report 10337574 (Version 3)
Quarter: 2014Q3

REPORT INFORMATION
  Report Type: Spontaneous
  Country: IT (occurrence: IT)
  Receive Date: 20140724
  Receipt Date: 20140814
  Transmission Date: 20150326
  Serious: Yes (Death, Hospitalization, Other)
  Sender: FDA-Public Use
  Company Number: IT-009507513-1407ITA006394

PATIENT
  Age: 64 Year
  Sex: Female

DRUGS (3)
  1. PEGASYS [Suspect]
     Active Substance: PEGINTERFERON ALFA-2A
     Indication: HEPATITIS C
     Dosage: 180 MICROGRAM, QW
     Route: 058
     Dates: start: 20140221, end: 20140613
  2. REBETOL [Suspect]
     Active Substance: RIBAVIRIN
     Indication: HEPATITIS C
     Dosage: TOTAL DAILY DOSE: 1200 MG, FREQUENCY: DAILY
     Route: 048
     Dates: start: 20140221, end: 20140613
  3. TELAPREVIR [Suspect]
     Active Substance: TELAPREVIR
     Indication: HEPATITIS C
     Dosage: TOTAL DAILY DOSE: 2250 MG; FREQUENCY: DAILY
     Route: 048
     Dates: start: 20140221, end: 20140613

REACTIONS (6)
  - Cardio-respiratory arrest [Fatal]
  - Psychomotor hyperactivity [Fatal]
  - Hypercapnia [Fatal]
  - Hepatic cirrhosis [Fatal]
  - Peritonitis bacterial [Fatal]
  - Pneumonia aspiration [Fatal]

NARRATIVE: CASE EVENT DATE: 20140627
